FAERS Safety Report 6416563-0 (Version None)
Quarter: 2009Q4

REPORT INFORMATION
  Report Type: 
  Country: None (occurrence: None)
  Receive Date: 20091027
  Receipt Date: 20091014
  Transmission Date: 20100525
  Serious: Yes (Hospitalization)
  Sender: FDA-Public Use
  Company Number: CH-ELI_LILLY_AND_COMPANY-CH200909005518

PATIENT
  Age: 63 Year
  Sex: Female
  Weight: 58 kg

DRUGS (10)
  1. FORTEO [Suspect]
     Indication: OSTEOPOROSIS
     Dosage: 20 UG, DAILY (1/D)
     Route: 058
     Dates: start: 20081204, end: 20090504
  2. FORTEO [Suspect]
     Dosage: UNK, UNK
     Route: 058
     Dates: start: 20090901
  3. PREDNISON [Concomitant]
     Indication: COLLAGEN DISORDER
     Dosage: 11 MG, UNK
     Route: 048
  4. PREDNISON [Concomitant]
     Dosage: 10 MG, EACH MORNING
     Dates: start: 20090605
  5. CALCI ^GRY^ [Concomitant]
     Indication: OSTEOPOROSIS
  6. CHOLECALCIFEROL [Concomitant]
     Indication: OSTEOPOROSIS
  7. CALCIMAGON-D 3 [Concomitant]
     Indication: OSTEOPOROSIS
     Dosage: 2 D/F, DAILY (1/D)
     Route: 048
  8. NEXIUM [Concomitant]
     Indication: GASTRIC ULCER
     Dosage: 40 MG, DAILY (1/D)
     Route: 048
  9. NEXIUM [Concomitant]
     Dosage: 40 MG, 2/D
     Dates: start: 20090605
  10. DURAGESIC-100 [Concomitant]
     Route: 062

REACTIONS (2)
  - FRACTURE [None]
  - PANCREATIC CARCINOMA [None]
